FAERS Safety Report 7523181-X (Version None)
Quarter: 2011Q2

REPORT INFORMATION
  Report Type: 
  Country: None (occurrence: None)
  Receive Date: 20110603
  Receipt Date: 20110519
  Transmission Date: 20111010
  Serious: Yes (Other)
  Sender: FDA-Public Use
  Company Number: US-UCBSA-033612

PATIENT
  Sex: Female
  Weight: 50 kg

DRUGS (3)
  1. ABILIFY [Concomitant]
  2. LITHIUM CARBONATE [Concomitant]
     Dosage: 'LOWEST DOSES'PATIENT REFUSED ADDITIONAL INFO AT THIS TIME.
  3. CIMZIA [Suspect]
     Indication: CROHN'S DISEASE
     Route: 058
     Dates: start: 20090605

REACTIONS (1)
  - STAPHYLOCOCCAL INFECTION [None]
